FAERS Safety Report 6321562-3 (Version None)
Quarter: 2009Q3

REPORT INFORMATION
  Report Type: 
  Country: None (occurrence: None)
  Receive Date: 20090821
  Receipt Date: 20090821
  Transmission Date: 20100115
  Serious: No
  Sender: FDA-Public Use
  Company Number: None

PATIENT
  Age: 26 Year
  Sex: Male
  Weight: 88.4514 kg

DRUGS (1)
  1. CREST PRO HEALTH PROCTOR + GAMBLE [Suspect]
     Indication: DENTAL DISORDER PROPHYLAXIS
     Dosage: MOUTH FULL MORNING DENTAL
     Route: 004

REACTIONS (1)
  - HYPOGEUSIA [None]
